FAERS Safety Report 12925489 (Version 1)
Quarter: 2016Q4

REPORT INFORMATION
  Report Type: Report from Study
  Country: AR (occurrence: AR)
  Receive Date: 20161109
  Receipt Date: 20161109
  Transmission Date: 20170207
  Serious: Yes (Other)
  Sender: FDA-Public Use
  Company Number: PHHY2016AR144285

PATIENT
  Sex: Female

DRUGS (2)
  1. TASIGNA [Suspect]
     Active Substance: NILOTINIB
     Dosage: 800 MG, QD
     Route: 048
     Dates: start: 201604
  2. TASIGNA [Suspect]
     Active Substance: NILOTINIB
     Indication: CHRONIC MYELOID LEUKAEMIA
     Dosage: 400 MG, QOD (EVERY OTHER DAY)
     Route: 065
     Dates: start: 2012, end: 201604

REACTIONS (16)
  - Hyperglycaemia [Unknown]
  - Decreased appetite [Unknown]
  - Platelet count decreased [Unknown]
  - Weight decreased [Unknown]
  - Incorrect drug administration duration [Recovered/Resolved]
  - Asthmatic crisis [Recovered/Resolved]
  - Thyroid disorder [Unknown]
  - White blood cell count increased [Unknown]
  - Scleroderma [Unknown]
  - Hypothyroidism [Unknown]
  - Pyrexia [Recovering/Resolving]
  - Gastritis [Unknown]
  - Rheumatoid arthritis [Unknown]
  - Reflux gastritis [Unknown]
  - Rash [Unknown]
  - Asthenia [Unknown]

NARRATIVE: CASE EVENT DATE: 2012
